FAERS Safety Report 18533879 (Version 1)
Quarter: 2020Q4

REPORT INFORMATION
  Report Type: Spontaneous
  Country: US (occurrence: US)
  Receive Date: 20201120
  Receipt Date: 20201120
  Transmission Date: 20210114
  Serious: Yes (Hospitalization)
  Sender: FDA-Public Use
  Company Number: None

PATIENT
  Age: 40 Year
  Sex: Female

DRUGS (9)
  1. TRUVADA [Suspect]
     Active Substance: EMTRICITABINE\TENOFOVIR DISOPROXIL FUMARATE
     Indication: EXPOSURE TO COMMUNICABLE DISEASE
     Route: 048
     Dates: start: 20190529
  2. FEROSUL [Concomitant]
     Active Substance: FERROUS SULFATE
  3. FLUCONAZOLE. [Concomitant]
     Active Substance: FLUCONAZOLE
  4. NIFEDIPINE. [Concomitant]
     Active Substance: NIFEDIPINE
  5. LABETALOL [Concomitant]
     Active Substance: LABETALOL\LABETALOL HYDROCHLORIDE
  6. FERROUS SULF [Concomitant]
     Active Substance: FERROUS SULFATE
  7. IBUPROFEN. [Concomitant]
     Active Substance: IBUPROFEN
  8. DOK [Concomitant]
     Active Substance: DOCUSATE SODIUM
  9. TRAMADOL. [Concomitant]
     Active Substance: TRAMADOL

REACTIONS (4)
  - Pregnancy [None]
  - Delivery [None]
  - Therapy interrupted [None]
  - Exposure during pregnancy [None]

NARRATIVE: CASE EVENT DATE: 20201021
